FAERS Safety Report 8859424 (Version 1)
Quarter: 2012Q4

REPORT INFORMATION
  Report Type: 
  Country: FR (occurrence: FR)
  Receive Date: 20121024
  Receipt Date: 20121024
  Transmission Date: 20130627
  Serious: Yes (Hospitalization)
  Sender: FDA-Public Use
  Company Number: FR-ROCHE-1146411

PATIENT
  Age: 62 Year
  Sex: Male

DRUGS (8)
  1. CELLCEPT [Suspect]
     Indication: PRODUCT USED FOR UNKNOWN INDICATION
     Route: 048
     Dates: start: 20120518, end: 20120922
  2. ROVALCYTE [Suspect]
     Indication: PRODUCT USED FOR UNKNOWN INDICATION
     Route: 048
     Dates: start: 20120518
  3. ADVAGRAF [Concomitant]
     Route: 065
  4. CERTICAN [Concomitant]
     Route: 065
  5. EUPRESSYL [Concomitant]
     Route: 065
  6. KREDEX [Concomitant]
     Route: 065
  7. KARDEGIC [Concomitant]
     Route: 065
  8. LESCOL [Concomitant]
     Route: 065

REACTIONS (2)
  - Leukopenia [Recovered/Resolved]
  - Agranulocytosis [Recovered/Resolved]
